FAERS Safety Report 4828767-9 (Version None)
Quarter: 2005Q4

REPORT INFORMATION
  Report Type: 
  Country: None (occurrence: None)
  Receive Date: 20051115
  Receipt Date: 20050915
  Transmission Date: 20060501
  Serious: Yes (Hospitalization, Other)
  Sender: FDA-Public Use
  Company Number: US-MERCK-0509USA02210

PATIENT
  Age: 68 Year
  Sex: Male

DRUGS (10)
  1. VIOXX [Suspect]
     Indication: MUSCULOSKELETAL DISCOMFORT
     Route: 048
     Dates: start: 20010301, end: 20030101
  2. VIOXX [Suspect]
     Route: 048
     Dates: start: 20010301, end: 20030101
  3. GLUCOPHAGE [Concomitant]
     Route: 065
  4. RANITIDINE [Concomitant]
     Route: 065
  5. LORAZEPAM [Concomitant]
     Route: 065
  6. ZOCOR [Concomitant]
     Route: 065
  7. ISOSORBIDE [Concomitant]
     Route: 065
  8. METOPROLOL [Concomitant]
     Route: 065
  9. ECOTRIN [Concomitant]
     Route: 065
  10. ALLOPURINOL [Concomitant]
     Route: 065

REACTIONS (32)
  - ANION GAP INCREASED [None]
  - ANORECTAL DISORDER [None]
  - ANXIETY [None]
  - ASTHENIA [None]
  - CALCULUS URETERIC [None]
  - CEREBRAL HAEMATOMA [None]
  - CEREBRAL HAEMORRHAGE [None]
  - CEREBRAL INFARCTION [None]
  - COLONIC POLYP [None]
  - CONVULSION [None]
  - DEEP VEIN THROMBOSIS [None]
  - DEPRESSION [None]
  - ENCEPHALOMALACIA [None]
  - ERECTILE DYSFUNCTION [None]
  - GRAND MAL CONVULSION [None]
  - HAEMORRHAGE INTRACRANIAL [None]
  - HEADACHE [None]
  - HYDRONEPHROSIS [None]
  - HYPERKALAEMIA [None]
  - MALNUTRITION [None]
  - MENINGITIS [None]
  - NEPHROLITHIASIS [None]
  - OBESITY [None]
  - OSTEOARTHRITIS [None]
  - PULMONARY EMBOLISM [None]
  - SIMPLE PARTIAL SEIZURES [None]
  - SLEEP APNOEA SYNDROME [None]
  - SUBDURAL HAEMATOMA [None]
  - SUBDURAL HAEMORRHAGE [None]
  - SUPRAVENTRICULAR TACHYCARDIA [None]
  - TACHYCARDIA [None]
  - TRANSIENT ISCHAEMIC ATTACK [None]
